FAERS Safety Report 16098378 (Version 2)
Quarter: 2019Q2

REPORT INFORMATION
  Report Type: Other
  Country: DE (occurrence: DE)
  Receive Date: 20190321
  Receipt Date: 20190403
  Transmission Date: 20190711
  Serious: Yes (Hospitalization, Other)
  Sender: FDA-Public Use
  Company Number: DE-STRIDES ARCOLAB LIMITED-2019SP002367

PATIENT
  Sex: Female
  Weight: 53.5 kg

DRUGS (3)
  1. MACROGOL, SODIUM CHLORIDE, POTASSIUM CHLORIDE, SODIUM BICARBONATE [Suspect]
     Active Substance: POLYETHYLENE GLYCOL 3350\POTASSIUM CHLORIDE\SODIUM BICARBONATE\SODIUM CHLORIDE
     Indication: COLONOSCOPY
     Dosage: 1 DF, UNK (1-2X AT A MAX DAILY)
     Route: 048
     Dates: start: 201708
  2. MACROGOL, SODIUM CHLORIDE, POTASSIUM CHLORIDE, SODIUM BICARBONATE [Suspect]
     Active Substance: POLYETHYLENE GLYCOL 3350\POTASSIUM CHLORIDE\SODIUM BICARBONATE\SODIUM CHLORIDE
     Indication: MEGACOLON
     Dosage: UNK
     Route: 065
  3. MACROGOL, SODIUM CHLORIDE, POTASSIUM CHLORIDE, SODIUM BICARBONATE [Suspect]
     Active Substance: POLYETHYLENE GLYCOL 3350\POTASSIUM CHLORIDE\SODIUM BICARBONATE\SODIUM CHLORIDE
     Indication: CONSTIPATION
     Dosage: UNK
     Route: 065

REACTIONS (18)
  - Lactose intolerance [Unknown]
  - Arrhythmia [Unknown]
  - Tinnitus [Unknown]
  - Rhinorrhoea [Unknown]
  - Pruritus [Unknown]
  - Abdominal pain [Unknown]
  - Fructose intolerance [Unknown]
  - Concomitant disease aggravated [Unknown]
  - Oedema [Unknown]
  - Tachycardia [Unknown]
  - Subileus [Unknown]
  - Circulatory collapse [Unknown]
  - Gluten sensitivity [Unknown]
  - Nausea [Unknown]
  - Histamine intolerance [Unknown]
  - Asthma [Unknown]
  - Hypotension [Unknown]
  - Ileus [Unknown]

NARRATIVE: CASE EVENT DATE: 201709
